FAERS Safety Report 15220266 (Version 1)
Quarter: 2018Q3

REPORT INFORMATION
  Report Type: Spontaneous
  Country: FR (occurrence: FR)
  Receive Date: 20180731
  Receipt Date: 20180731
  Transmission Date: 20181010
  Serious: Yes (Other)
  Sender: FDA-Public Use
  Company Number: FR-ACCORD-070326

PATIENT
  Age: 57 Year
  Sex: Male
  Weight: 78.5 kg

DRUGS (7)
  1. MICROPAKINE [Suspect]
     Active Substance: VALPROATE SODIUM
     Indication: EPILEPSY
     Dosage: 1750 MG / DAY
     Route: 048
     Dates: start: 201707, end: 20170920
  2. UVEDOSE [Concomitant]
     Active Substance: CHOLECALCIFEROL
  3. RISPERIDONE. [Concomitant]
     Active Substance: RISPERIDONE
  4. APROVEL [Concomitant]
     Active Substance: IRBESARTAN
  5. KARDEGIC [Concomitant]
     Active Substance: ASPIRIN DL-LYSINE
  6. URBANYL [Suspect]
     Active Substance: CLOBAZAM
     Indication: EPILEPSY
     Route: 048
     Dates: end: 201707
  7. TOPIRAMATE. [Suspect]
     Active Substance: TOPIRAMATE
     Indication: EPILEPSY
     Dosage: 330 MG / DAY
     Route: 048
     Dates: start: 201707, end: 20170920

REACTIONS (4)
  - Product substitution issue [Unknown]
  - Abnormal behaviour [Not Recovered/Not Resolved]
  - Condition aggravated [Not Recovered/Not Resolved]
  - Product formulation issue [Unknown]

NARRATIVE: CASE EVENT DATE: 2017
